FAERS Safety Report 17246107 (Version 2)
Quarter: 2020Q1

REPORT INFORMATION
  Report Type: Spontaneous
  Country: FR (occurrence: FR)
  Receive Date: 20200108
  Receipt Date: 20200117
  Transmission Date: 20200409
  Serious: Yes (Disabling)
  Sender: FDA-Public Use
  Company Number: FR-TEVA-2019-FR-1100276

PATIENT
  Sex: Male
  Weight: 93 kg

DRUGS (2)
  1. ATORVASTATIN [Concomitant]
     Active Substance: ATORVASTATIN
  2. LEVOFLOXACINE TEVA 500 MG [Suspect]
     Active Substance: LEVOFLOXACIN
     Indication: URINARY TRACT INFECTION
     Dosage: 500 MILLIGRAM DAILY; FOR TEN DAYS
     Route: 048
     Dates: start: 2019

REACTIONS (10)
  - Tendonitis [Not Recovered/Not Resolved]
  - Epicondylitis [Not Recovered/Not Resolved]
  - Tendon pain [Not Recovered/Not Resolved]
  - Headache [Recovered/Resolved]
  - Arthralgia [Not Recovered/Not Resolved]
  - Walking aid user [Not Recovered/Not Resolved]
  - Balance disorder [Not Recovered/Not Resolved]
  - Gait disturbance [Not Recovered/Not Resolved]
  - Pain in extremity [Not Recovered/Not Resolved]
  - Neck pain [Not Recovered/Not Resolved]
